FAERS Safety Report 5275487-5 (Version None)
Quarter: 2007Q1

REPORT INFORMATION
  Report Type: 
  Country: None (occurrence: None)
  Receive Date: 20070322
  Receipt Date: 20070322
  Transmission Date: 20070707
  Serious: Yes (Hospitalization)
  Sender: FDA-Public Use
  Company Number: None

PATIENT
  Age: 71 Year
  Sex: Male
  Weight: 80.2867 kg

DRUGS (6)
  1. BEVACIZUMAB [Suspect]
     Indication: TONSIL CANCER
     Dosage: 10 MG/KG Q 2 WEEKS IV
     Route: 042
     Dates: start: 20070102
  2. BEVACIZUMAB [Suspect]
     Indication: TONSIL CANCER
     Dosage: 10 MG/KG Q 2 WEEKS IV
     Route: 042
     Dates: start: 20070213
  3. BEVACIZUMAB [Suspect]
     Indication: TONSIL CANCER
     Dosage: 10 MG/KG Q 2 WEEKS IV
     Route: 042
     Dates: start: 20070226
  4. ERLOTINIB HYDROCHLORIDE [Suspect]
     Dosage: 100MG EVERY DAY ORALLY
     Route: 048
     Dates: start: 20070212, end: 20070306
  5. RADIATION THERAPY [Concomitant]
  6. CISPLATIN [Concomitant]

REACTIONS (2)
  - NEUTROPENIA [None]
  - PYREXIA [None]
